FAERS Safety Report 25299033 (Version 3)
Quarter: 2025Q3

REPORT INFORMATION
  Report Type: Report from Study
  Country: CA (occurrence: CA)
  Receive Date: 20250512
  Receipt Date: 20250709
  Transmission Date: 20251021
  Serious: Yes (Death, Hospitalization, Other)
  Sender: APOTEX
  Company Number: CA-APOTEX-2025AP006814

PATIENT
  Age: 70 Year
  Sex: Male

DRUGS (1)
  1. LENALIDOMIDE [Suspect]
     Active Substance: LENALIDOMIDE
     Indication: Plasma cell myeloma refractory
     Dosage: 10 MILLIGRAM, QD (TAKE 1 CAPSULE DAILY FOR DAYS 1- 21)
     Route: 048
     Dates: start: 20220825, end: 202505

REACTIONS (6)
  - Death [Fatal]
  - Fluid retention [Unknown]
  - Stoma site haemorrhage [Recovering/Resolving]
  - Hypotension [Unknown]
  - Anaemia [Recovering/Resolving]
  - Off label use [Unknown]

NARRATIVE: CASE EVENT DATE: 20220825
